FAERS Safety Report 14903983 (Version 1)
Quarter: 2018Q2

REPORT INFORMATION
  Report Type: Spontaneous
  Country: US (occurrence: US)
  Receive Date: 20180516
  Receipt Date: 20180516
  Transmission Date: 20180711
  Serious: No
  Sender: FDA-Public Use
  Company Number: US-COLLEGIUM PHARMACEUTICAL, INC.-2018CGM00137

PATIENT
  Age: 58 Year
  Sex: Male
  Weight: 83.9 kg

DRUGS (4)
  1. OXYCODONE [Concomitant]
     Active Substance: OXYCODONE
     Dosage: 30 MG, 4X/DAY
  2. XTAMPZA ER [Suspect]
     Active Substance: OXYCODONE
     Indication: PAIN IN EXTREMITY
  3. XTAMPZA ER [Suspect]
     Active Substance: OXYCODONE
     Indication: PAIN
     Dosage: 36 MG, 2X/DAY (EVERY 12 HOURS)
     Route: 048
     Dates: start: 20180416, end: 2018
  4. XTAMPZA ER [Suspect]
     Active Substance: OXYCODONE
     Indication: BACK PAIN

REACTIONS (3)
  - Neuralgia [Not Recovered/Not Resolved]
  - Hypoaesthesia [Not Recovered/Not Resolved]
  - Pain [Not Recovered/Not Resolved]

NARRATIVE: CASE EVENT DATE: 201804
